FAERS Safety Report 10010126 (Version 1)
Quarter: 2014Q1

REPORT INFORMATION
  Report Type: Spontaneous
  Country: US (occurrence: US)
  Receive Date: 20140312
  Receipt Date: 20140312
  Transmission Date: 20141002
  Serious: No
  Sender: FDA-Public Use
  Company Number: US-INCYTE CORPORATION-2013IN001787

PATIENT
  Sex: Female

DRUGS (4)
  1. JAKAFI [Suspect]
     Dosage: 15 MG, BID
     Route: 048
     Dates: start: 20120618
  2. LACTAID EXTRA STRENGTH [Concomitant]
  3. ACIDOPHILUS [Concomitant]
  4. PROLIA SYRINGE [Concomitant]
     Dosage: 60 MG/ML

REACTIONS (2)
  - Onychomycosis [Unknown]
  - Paronychia [Unknown]
